FAERS Safety Report 12908637 (Version 2)
Quarter: 2017Q1

REPORT INFORMATION
  Report Type: Report from Study
  Country: US (occurrence: US)
  Receive Date: 20161103
  Receipt Date: 20170127
  Transmission Date: 20170428
  Serious: No
  Sender: FDA-Public Use
  Company Number: GXBR2016US003129

PATIENT
  Sex: Female
  Weight: 38.6 kg

DRUGS (1)
  1. OMNITROPE [Suspect]
     Active Substance: SOMATROPIN
     Indication: HYPOPITUITARISM
     Dosage: 1.7 MG, QD
     Route: 058

REACTIONS (1)
  - Injection site pain [Not Recovered/Not Resolved]
